FAERS Safety Report 5730186-8 (Version None)
Quarter: 2008Q2

REPORT INFORMATION
  Report Type: 
  Country: None (occurrence: None)
  Receive Date: 20080507
  Receipt Date: 20080430
  Transmission Date: 20081010
  Serious: Yes (Other)
  Sender: FDA-Public Use
  Company Number: US-ASTRAZENECA-2008UW08831

PATIENT
  Age: 55 Year
  Sex: Female

DRUGS (4)
  1. CRESTOR [Suspect]
     Indication: HYPERTRIGLYCERIDAEMIA
     Route: 048
  2. CRESTOR [Suspect]
     Route: 048
  3. NIACIN [Suspect]
     Indication: HYPERCHOLESTEROLAEMIA
     Route: 048
     Dates: start: 19950101
  4. GEMFIBROZIL [Suspect]
     Indication: HYPERCHOLESTEROLAEMIA
     Route: 048
     Dates: start: 19950101

REACTIONS (4)
  - BLOOD GLUCOSE INCREASED [None]
  - BLOOD TRIGLYCERIDES INCREASED [None]
  - DRUG INTERACTION [None]
  - GLYCOSYLATED HAEMOGLOBIN INCREASED [None]
